FAERS Safety Report 14095747 (Version 1)
Quarter: 2017Q4

REPORT INFORMATION
  Report Type: Spontaneous
  Country: JP (occurrence: JP)
  Receive Date: 20171016
  Receipt Date: 20171016
  Transmission Date: 20180321
  Serious: Yes (Life-Threatening, Hospitalization, Other)
  Sender: FDA-Public Use
  Company Number: JP-BRISTOL-MYERS SQUIBB COMPANY-12106027

PATIENT
  Age: 63 Year
  Sex: Female

DRUGS (2)
  1. TAXOL [Suspect]
     Active Substance: PACLITAXEL
     Indication: UTERINE CANCER
     Dosage: 1ST DOSE DATE UNKNOWN  2 MORE CYCLES, UNKNOWN DOSE, FROM 15AUG TO 19SEP02
     Route: 042
     Dates: start: 20020226, end: 20020226
  2. PARAPLATIN [Suspect]
     Active Substance: CARBOPLATIN
     Indication: UTERINE CANCER
     Dosage: 1ST DOSE DATE UNKNOWN  2 MORE CYCLES FROM 15AUG - 19SEP02, UNKNOWN DOSE
     Route: 042
     Dates: start: 20020226, end: 20020226

REACTIONS (1)
  - Cystitis haemorrhagic [Not Recovered/Not Resolved]

NARRATIVE: CASE EVENT DATE: 20020328
